FAERS Safety Report 6359911-2 (Version None)
Quarter: 2009Q3

REPORT INFORMATION
  Report Type: 
  Country: None (occurrence: None)
  Receive Date: 20090917
  Receipt Date: 20090325
  Transmission Date: 20100115
  Serious: No
  Sender: FDA-Public Use
  Company Number: US-BRISTOL-MYERS SQUIBB COMPANY-14519110

PATIENT
  Sex: Female

DRUGS (1)
  1. MEGACE [Suspect]
     Indication: UTERINE LEIOMYOMA

REACTIONS (2)
  - HAEMORRHAGE [None]
  - WISKOTT-ALDRICH SYNDROME [None]
